FAERS Safety Report 8500674-X (Version None)
Quarter: 2012Q3

REPORT INFORMATION
  Report Type: 
  Country: None (occurrence: None)
  Receive Date: 20120710
  Receipt Date: 20120703
  Transmission Date: 20120928
  Serious: Yes (Other)
  Sender: FDA-Public Use
  Company Number: US-FOUGERA-2012FO001175

PATIENT
  Age: 10 Year
  Sex: Male

DRUGS (1)
  1. VEREGEN [Suspect]
     Indication: SKIN PAPILLOMA
     Route: 061
     Dates: start: 20120531, end: 20120605

REACTIONS (2)
  - PHOTOSENSITIVITY REACTION [None]
  - OFF LABEL USE [None]
